FAERS Safety Report 7582338-2 (Version None)
Quarter: 2011Q2

REPORT INFORMATION
  Report Type: 
  Country: None (occurrence: None)
  Receive Date: 20110630
  Receipt Date: 20110623
  Transmission Date: 20111010
  Serious: Yes (Life-Threatening, Hospitalization)
  Sender: FDA-Public Use
  Company Number: MY-JNJFOC-20110609507

PATIENT
  Weight: 78 kg

DRUGS (9)
  1. GABAPENTIN [Concomitant]
     Route: 048
     Dates: start: 20101008
  2. PLACEBO [Suspect]
     Indication: RHEUMATOID ARTHRITIS
     Route: 042
     Dates: start: 20100326
  3. BLINDED; GOLIMUMA [Suspect]
     Route: 042
     Dates: start: 20110527
  4. PLACEBO [Suspect]
     Route: 042
     Dates: start: 20110527
  5. FOLATE [Concomitant]
     Route: 048
     Dates: start: 20070530
  6. BLINDED; GOLIMUMA [Suspect]
     Indication: RHEUMATOID ARTHRITIS
     Route: 042
     Dates: start: 20100326
  7. ROCALTROL [Concomitant]
     Indication: MEDICAL DIET
     Route: 048
     Dates: start: 20070530
  8. NAPROSYN [Concomitant]
     Indication: RHEUMATOID ARTHRITIS
     Route: 048
     Dates: start: 20100128
  9. FUCIDINE CAP [Concomitant]
     Route: 061
     Dates: start: 20101130

REACTIONS (24)
  - C-REACTIVE PROTEIN INCREASED [None]
  - TACHYCARDIA [None]
  - BLOOD ALBUMIN INCREASED [None]
  - EOSINOPHIL PERCENTAGE DECREASED [None]
  - MUSCULOSKELETAL STIFFNESS [None]
  - HAEMATOCRIT DECREASED [None]
  - MEAN CELL HAEMOGLOBIN DECREASED [None]
  - BLOOD ALKALINE PHOSPHATASE INCREASED [None]
  - BLOOD PH INCREASED [None]
  - WHITE BLOOD CELL COUNT INCREASED [None]
  - BLOOD CREATININE INCREASED [None]
  - PCO2 DECREASED [None]
  - TONSILLITIS [None]
  - PO2 INCREASED [None]
  - RED CELL DISTRIBUTION WIDTH INCREASED [None]
  - UPPER RESPIRATORY TRACT INFECTION [None]
  - ARTHRALGIA [None]
  - MONOCYTE PERCENTAGE DECREASED [None]
  - NEUTROPHIL PERCENTAGE INCREASED [None]
  - PNEUMONIA [None]
  - OEDEMA PERIPHERAL [None]
  - HAEMOGLOBIN DECREASED [None]
  - LYMPHOCYTE PERCENTAGE DECREASED [None]
  - MEAN PLATELET VOLUME INCREASED [None]
